FAERS Safety Report 4479152-3 (Version None)
Quarter: 2004Q3

REPORT INFORMATION
  Report Type: 
  Country: None (occurrence: None)
  Receive Date: 20040923
  Receipt Date: 20040729
  Transmission Date: 20050211
  Serious: No
  Sender: FDA-Public Use
  Company Number: 207577

PATIENT
  Age: 61 Year
  Sex: Female
  Weight: 75 kg

DRUGS (7)
  1. AVASTIN [Suspect]
     Indication: COLON CANCER
     Dosage: 400 MG, Q2W, INTRAVENOUS
     Route: 042
     Dates: start: 20040415
  2. MEPERGAN (PROMETHAZINE HYDROCHLORIDE, MEPERIDINE HYDROCHLORIDE) [Concomitant]
  3. BACLOFEN [Concomitant]
  4. NEURONTIN [Concomitant]
  5. CELEXA [Concomitant]
  6. LORAZEPAM [Concomitant]
  7. AMBIEN [Concomitant]

REACTIONS (1)
  - IMPAIRED HEALING [None]
